FAERS Safety Report 8443084-6 (Version None)
Quarter: 2012Q2

REPORT INFORMATION
  Report Type: 
  Country: None (occurrence: None)
  Receive Date: 20120615
  Receipt Date: 20120613
  Transmission Date: 20120825
  Serious: Yes (Other)
  Sender: FDA-Public Use
  Company Number: CN-ABBOTT-12P-035-0946425-00

PATIENT
  Age: 22 Year
  Sex: Female

DRUGS (2)
  1. VALPROATE SODIUM [Suspect]
     Dosage: 2 DOSAGE FORM DAILY
     Route: 048
     Dates: start: 20120601
  2. VALPROATE SODIUM [Suspect]
     Indication: EPILEPSY
     Dosage: 1 DOSAGE FORM DAILY
     Route: 048
     Dates: start: 20100101, end: 20120601

REACTIONS (5)
  - NO THERAPEUTIC RESPONSE [None]
  - CONVULSION [None]
  - EPILEPSY [None]
  - HEADACHE [None]
  - LOSS OF CONSCIOUSNESS [None]
